FAERS Safety Report 24034703 (Version 2)
Quarter: 2024Q3

REPORT INFORMATION
  Report Type: Report from Study
  Country: US (occurrence: US)
  Receive Date: 20240701
  Receipt Date: 20240710
  Transmission Date: 20241017
  Serious: No
  Sender: ROCHE
  Company Number: US-ROCHE-3426427

PATIENT
  Age: 6 Year
  Sex: Female
  Weight: 19.05 kg

DRUGS (1)
  1. EVRYSDI [Suspect]
     Active Substance: RISDIPLAM
     Indication: Spinal muscular atrophy
     Dosage: TAKE 5 MG (6ML)
     Route: 048

REACTIONS (2)
  - Product prescribing error [Unknown]
  - No adverse event [Unknown]
